FAERS Safety Report 10704386 (Version 1)
Quarter: 2015Q1

REPORT INFORMATION
  Report Type: Spontaneous
  Country: DE (occurrence: DE)
  Receive Date: 20150112
  Receipt Date: 20150112
  Transmission Date: 20150721
  Serious: Yes (Other)
  Sender: FDA-Public Use
  Company Number: GXKR2015DE000465

PATIENT

DRUGS (4)
  1. BROMAZEPAM [Suspect]
     Active Substance: BROMAZEPAM
     Indication: POST-TRAUMATIC STRESS DISORDER
     Dosage: 6 MG, QD, 0.-36+4 GW
     Route: 064
     Dates: start: 20140307, end: 20141118
  2. CITALOPRAM [Suspect]
     Active Substance: CITALOPRAM HYDROBROMIDE
     Indication: POST-TRAUMATIC STRESS DISORDER
     Dosage: 60 MG, QD, 0.-36.4 GW
     Route: 064
     Dates: start: 20140307, end: 20141118
  3. RITALIN [Suspect]
     Active Substance: METHYLPHENIDATE HYDROCHLORIDE
     Indication: NARCOLEPSY
     Dosage: 60 MG, QD, 0.-36+4 GW
     Route: 064
     Dates: start: 20140307, end: 20141118
  4. L-THYROXINE//LEVOTHYROXINE [Concomitant]
     Indication: HYPOTHYROIDISM
     Dosage: 50 [?G/D ]
     Route: 064
     Dates: start: 20140307, end: 20141118

REACTIONS (4)
  - Hypertonia neonatal [Recovered/Resolved]
  - Bradycardia neonatal [Recovered/Resolved]
  - Tremor neonatal [Recovering/Resolving]
  - Apnoea neonatal [Recovered/Resolved]

NARRATIVE: CASE EVENT DATE: 20141118
